FAERS Safety Report 19406809 (Version 3)
Quarter: 2021Q3

REPORT INFORMATION
  Report Type: Report from Study
  Country: BD (occurrence: BD)
  Receive Date: 20210611
  Receipt Date: 20210707
  Transmission Date: 20211014
  Serious: Yes (Death)
  Sender: FDA-Public Use
  Company Number: NVSC2021BD131679

PATIENT
  Age: 62 Year
  Sex: Male
  Weight: 78 kg

DRUGS (2)
  1. ENTRESTO [Suspect]
     Active Substance: SACUBITRIL\VALSARTAN
     Indication: CARDIAC FAILURE
     Dosage: 1 DF (28S), BID
     Route: 048
     Dates: start: 2018, end: 20210601
  2. GALVUS [Suspect]
     Active Substance: VILDAGLIPTIN
     Indication: TYPE 2 DIABETES MELLITUS
     Dosage: 1 DF (28^S), BID
     Route: 048
     Dates: start: 2018, end: 20210601

REACTIONS (2)
  - Sleep apnoea syndrome [Fatal]
  - Cardiac arrest [Fatal]

NARRATIVE: CASE EVENT DATE: 20210602
